FAERS Safety Report 9166905 (Version 2)
Quarter: 2013Q1

REPORT INFORMATION
  Report Type: Spontaneous
  Country: ES (occurrence: ES)
  Receive Date: 20130318
  Receipt Date: 20130321
  Transmission Date: 20140127
  Serious: Yes (Hospitalization)
  Sender: FDA-Public Use
  Company Number: PHHY2013ES024395

PATIENT
  Age: 66 Year
  Sex: Male

DRUGS (3)
  1. 5-FLUOROURACIL [Suspect]
     Indication: RECTOSIGMOID CANCER METASTATIC
     Dosage: 600 MG/M2, 12 CYCLES
  2. OXALIPLATIN [Suspect]
     Indication: RECTOSIGMOID CANCER METASTATIC
     Dosage: 85 MG/M2, 12 CYCLES
  3. FOLINIC ACID [Concomitant]
     Indication: RECTOSIGMOID CANCER METASTATIC
     Dosage: 200 MG/M2

REACTIONS (1)
  - Renal failure acute [Recovered/Resolved]
